FAERS Safety Report 9855396 (Version 1)
Quarter: 2014Q1

REPORT INFORMATION
  Report Type: Spontaneous
  Country: US (occurrence: US)
  Receive Date: 20140130
  Receipt Date: 20140130
  Transmission Date: 20141002
  Serious: Yes (Death)
  Sender: FDA-Public Use
  Company Number: US-JNJFOC-20140117240

PATIENT
  Sex: Female

DRUGS (5)
  1. XARELTO [Suspect]
     Indication: THROMBOSIS
     Route: 048
  2. LAMICTAL [Concomitant]
     Route: 048
  3. RESTASIS [Concomitant]
     Route: 065
  4. ABILIFY [Concomitant]
     Route: 048
  5. NORTRIPTYLINE [Concomitant]
     Route: 048

REACTIONS (1)
  - Death [Fatal]
